FAERS Safety Report 8267924-9 (Version None)
Quarter: 2012Q2

REPORT INFORMATION
  Report Type: 
  Country: None (occurrence: None)
  Receive Date: 20120404
  Receipt Date: 20120322
  Transmission Date: 20120825
  Serious: Yes (Death, Hospitalization, Other)
  Sender: FDA-Public Use
  Company Number: 2011244624

PATIENT
  Age: 60 Year
  Sex: Male

DRUGS (15)
  1. INSULATARD NPH HUMAN [Suspect]
     Indication: DIABETES MELLITUS
     Dosage: 8 IU
     Dates: start: 20110718
  2. CLOPIDOGREL [Suspect]
     Dosage: 75 MG
  3. DALTEPARIN SODIUM [Suspect]
     Indication: TYPE 2 DIABETES MELLITUS
     Dosage: 1500 UNITS DAILY (1 DOSAGE FORM 1 DAY0
     Dates: start: 20110711
  4. CILAXORAL (SODIUM PICOSULFATE) [Suspect]
     Dates: start: 20110712, end: 20110725
  5. IMPORTAL (LACTITOL) [Concomitant]
  6. LACTULOSE [Suspect]
     Dates: start: 20110720, end: 20110725
  7. METFORMIN HCL [Suspect]
     Indication: TYPE 2 DIABETES MELLITUS
     Dosage: 1.5 G
     Dates: end: 20110711
  8. BLINDED THERAPY (BLINDED THERAPY) [Suspect]
     Indication: TYPE 2 DIABETES MELLITUS
     Dates: start: 20110414, end: 20110711
  9. NOVOLOG [Suspect]
     Indication: DIABETES MELLITUS
     Dosage: 8 IU
     Dates: start: 20110711, end: 20110719
  10. ASPIRIN [Suspect]
     Dosage: 75 MG
     Dates: end: 20110722
  11. OMEPRAZOLE [Concomitant]
  12. SPIRONOLACTONE [Concomitant]
  13. OXYCONTIN [Concomitant]
  14. ASPIRIN [Concomitant]
  15. FUROSEMIDE [Concomitant]

REACTIONS (19)
  - PERCUTANEOUS CORONARY INTERVENTION [None]
  - HAEMATURIA [None]
  - ASPARTATE AMINOTRANSFERASE INCREASED [None]
  - CONSTIPATION [None]
  - NAUSEA [None]
  - ALANINE AMINOTRANSFERASE INCREASED [None]
  - COUGH [None]
  - PANCREATITIS ACUTE [None]
  - ASCITES [None]
  - BLOOD ALKALINE PHOSPHATASE INCREASED [None]
  - PORTAL HYPERTENSION [None]
  - INGUINAL HERNIA [None]
  - PORTAL VEIN THROMBOSIS [None]
  - DILATATION VENTRICULAR [None]
  - PULMONARY EMBOLISM [None]
  - ALCOHOL USE [None]
  - VARICOSE VEIN [None]
  - SUDDEN CARDIAC DEATH [None]
  - HEPATIC CIRRHOSIS [None]
